FAERS Safety Report 8001938-9 (Version None)
Quarter: 2011Q4

REPORT INFORMATION
  Report Type: 
  Country: None (occurrence: None)
  Receive Date: 20111222
  Receipt Date: 20111214
  Transmission Date: 20120403
  Serious: Yes (Other)
  Sender: FDA-Public Use
  Company Number: US-SANOFI-AVENTIS-2011SA082217

PATIENT
  Sex: Female

DRUGS (2)
  1. EFFIENT [Concomitant]
  2. PLAVIX [Suspect]
     Indication: STENT PLACEMENT
     Route: 048
     Dates: start: 20110401, end: 20111101

REACTIONS (4)
  - HAEMATURIA [None]
  - NAUSEA [None]
  - THROMBOSIS [None]
  - HAEMATEMESIS [None]
